FAERS Safety Report 21352361 (Version 1)
Quarter: 2022Q3

REPORT INFORMATION
  Report Type: Spontaneous
  Country: US (occurrence: None)
  Receive Date: 20220920
  Receipt Date: 20220920
  Transmission Date: 20221026
  Serious: No
  Sender: FDA-Public Use
  Company Number: US-ROCHE-3137832

PATIENT
  Sex: Female

DRUGS (1)
  1. GAVRETO [Suspect]
     Active Substance: PRALSETINIB
     Indication: Lung carcinoma cell type unspecified stage IV
     Dosage: DAILY DOSE REDUCED FROM 4 TAB TO 2 TABLETS
     Route: 048

REACTIONS (6)
  - Dizziness [Unknown]
  - Hypotension [Unknown]
  - Heart rate decreased [Unknown]
  - Ageusia [Unknown]
  - Decreased appetite [Unknown]
  - Vision blurred [Unknown]
